FAERS Safety Report 10158372 (Version 2)
Quarter: 2014Q2

REPORT INFORMATION
  Report Type: Spontaneous
  Country: IN (occurrence: IN)
  Receive Date: 20140507
  Receipt Date: 20140513
  Transmission Date: 20141212
  Serious: Yes (Other)
  Sender: FDA-Public Use
  Company Number: IN-009507513-1405IND002100

PATIENT
  Age: 59 Year
  Sex: Female
  Weight: 72 kg

DRUGS (4)
  1. JANUVIA [Suspect]
     Indication: DIABETES MELLITUS
     Dosage: 100 MG, BID
     Route: 048
  2. INSUGEN 30/70 [Concomitant]
     Dosage: 15 U IN THE MORNING BEFORE BREAKFAST
  3. INSUGEN 30/70 [Concomitant]
     Dosage: 27 U NIGHT BEFORE DINNER
  4. INSULIN DEGLUDEC [Concomitant]
     Dosage: 32 U MORNING AFTER 20 MINUTES OF BREAKFAST

REACTIONS (3)
  - Hypoglycaemia [Unknown]
  - Overdose [Unknown]
  - Inappropriate schedule of drug administration [Unknown]
